FAERS Safety Report 15296784 (Version 5)
Quarter: 2018Q3

REPORT INFORMATION
  Report Type: Report from Study
  Country: None (occurrence: HU)
  Receive Date: 20180820
  Receipt Date: 20180926
  Transmission Date: 20181010
  Serious: Yes (Death, Life-Threatening, Hospitalization)
  Sender: FDA-Public Use
  Company Number: HU-ABBVIE-18S-076-2452983-00

PATIENT
  Age: 75 Year
  Sex: Female
  Weight: 47 kg

DRUGS (8)
  1. DUODOPA [Suspect]
     Active Substance: CARBIDOPA\LEVODOPA
     Route: 050
  2. DUODOPA [Suspect]
     Active Substance: CARBIDOPA\LEVODOPA
     Indication: PARKINSON^S DISEASE
     Dosage: MD 5.0 ML; CD 3.8 ML/H;ED2.3 ML?SUSPENDED
     Route: 050
     Dates: start: 20151124, end: 201808
  3. PANTOPRAZOL SANDOZ [Concomitant]
     Active Substance: PANTOPRAZOLE SODIUM
     Indication: PROPHYLAXIS
     Route: 048
     Dates: start: 201511
  4. ASA PROTECT PHARMAVIT [Concomitant]
     Indication: PROPHYLAXIS
     Route: 048
     Dates: start: 201711
  5. MADOPAR [Concomitant]
     Active Substance: BENSERAZIDE HYDROCHLORIDE\LEVODOPA
     Indication: PARKINSON^S DISEASE
     Dosage: 100/25MG 1X1 TABLET AT NIGHTS IF REQUIRED
     Route: 048
     Dates: start: 201511
  6. FRONTIN [Concomitant]
     Active Substance: ALPRAZOLAM
     Indication: ANXIETY
     Route: 048
     Dates: start: 2018
  7. CONCOR [Concomitant]
     Active Substance: BISOPROLOL FUMARATE
     Indication: HYPERTENSION
     Dosage: 5/12.5MG 1 TABLET AT A TIME
     Route: 048
     Dates: start: 2005
  8. FELODIPIN?RATIOPHARM [Concomitant]
     Indication: HYPERTENSION
     Route: 048
     Dates: start: 2005

REACTIONS (11)
  - Renal failure [Unknown]
  - Cardiac failure [Unknown]
  - Respiratory failure [Unknown]
  - Device issue [Unknown]
  - Pulmonary embolism [Fatal]
  - Thrombosis [Fatal]
  - Confusional state [Not Recovered/Not Resolved]
  - Pneumonia [Unknown]
  - Anaemia [Unknown]
  - Parkinson^s disease [Not Recovered/Not Resolved]
  - Sepsis [Unknown]

NARRATIVE: CASE EVENT DATE: 20180808
